FAERS Safety Report 17414838 (Version 1)
Quarter: 2020Q1

REPORT INFORMATION
  Report Type: Spontaneous
  Country: IT (occurrence: IT)
  Receive Date: 20200213
  Receipt Date: 20200213
  Transmission Date: 20200409
  Serious: Yes (Other)
  Sender: FDA-Public Use
  Company Number: NVSC2020IT038246

PATIENT
  Age: 22 Year
  Sex: Male

DRUGS (3)
  1. METHYLPREDNISOLONE. [Suspect]
     Active Substance: METHYLPREDNISOLONE
     Indication: ISCHAEMIC STROKE
     Dosage: 1 G, QD
     Route: 065
  2. PREDNISOLONE. [Suspect]
     Active Substance: PREDNISOLONE
     Indication: ISCHAEMIC STROKE
     Dosage: 1 MG/KG, Q4W
     Route: 065
  3. AZATHIOPRINE. [Suspect]
     Active Substance: AZATHIOPRINE
     Indication: ISCHAEMIC STROKE
     Dosage: 2 MG/KG, QD
     Route: 065

REACTIONS (1)
  - Hemiparesis [Unknown]
